FAERS Safety Report 7820796-6 (Version None)
Quarter: 2011Q4

REPORT INFORMATION
  Report Type: 
  Country: None (occurrence: None)
  Receive Date: 20111018
  Receipt Date: 20111011
  Transmission Date: 20120403
  Serious: Yes (Other)
  Sender: FDA-Public Use
  Company Number: ES-MERCK-1110ESP00026

PATIENT
  Age: 80 Year
  Sex: Female

DRUGS (4)
  1. SINEMET [Suspect]
     Indication: PARKINSON'S DISEASE
     Route: 048
     Dates: start: 20060101
  2. OLMESARTAN MEDOXOMIL [Concomitant]
     Indication: HYPERTENSION
     Route: 048
     Dates: start: 20060101
  3. RIVASTIGMINE TARTRATE [Suspect]
     Indication: DEMENTIA
     Route: 048
     Dates: start: 20090101, end: 20110212
  4. NIMODIPINE [Concomitant]
     Indication: CEREBRAL SMALL VESSEL ISCHAEMIC DISEASE
     Route: 048
     Dates: start: 20060101

REACTIONS (2)
  - HEART RATE ABNORMAL [None]
  - SYNCOPE [None]
